FAERS Safety Report 24675537 (Version 1)
Quarter: 2024Q4

REPORT INFORMATION
  Report Type: Other
  Country: KR (occurrence: KR)
  Receive Date: 20241128
  Receipt Date: 20241128
  Transmission Date: 20250114
  Serious: Yes (Hospitalization, Other)
  Sender: NUVO PHARMACEUTICALS
  Company Number: KR-Nuvo Pharmaceuticals Inc-2166166

PATIENT
  Age: 74 Year
  Sex: Male

DRUGS (2)
  1. NAPROXEN [Suspect]
     Active Substance: NAPROXEN
     Indication: Spinal stenosis
  2. POLMACOXIB [Suspect]
     Active Substance: POLMACOXIB

REACTIONS (2)
  - Intestinal diaphragm disease [Recovering/Resolving]
  - Product use in unapproved indication [Unknown]
